FAERS Safety Report 5807904-3 (Version None)
Quarter: 2008Q3

REPORT INFORMATION
  Report Type: 
  Country: None (occurrence: None)
  Receive Date: 20080711
  Receipt Date: 20080707
  Transmission Date: 20090109
  Serious: Yes (Hospitalization, Other)
  Sender: FDA-Public Use
  Company Number: ES-PFIZER INC-2008017605

PATIENT
  Age: 21 Year
  Sex: Male

DRUGS (4)
  1. ZIPRASIDONE (CAPS) [Suspect]
     Indication: PSYCHOTIC DISORDER
     Dosage: DAILY DOSE:250MG-TEXT:DAILY
     Route: 048
  2. LORMETAZEPAM [Concomitant]
     Route: 048
  3. QUETIAPINE FUMARATE [Concomitant]
     Route: 048
     Dates: start: 20080225, end: 20080229
  4. RIVOTRIL [Concomitant]
     Route: 048
     Dates: start: 20080202, end: 20080204

REACTIONS (4)
  - CONDUCT DISORDER [None]
  - EXTRAPYRAMIDAL DISORDER [None]
  - MUSCULAR WEAKNESS [None]
  - SALIVARY HYPERSECRETION [None]
